FAERS Safety Report 10050728 (Version 1)
Quarter: 2014Q2

REPORT INFORMATION
  Report Type: Spontaneous
  Country: US (occurrence: US)
  Receive Date: 20140401
  Receipt Date: 20140401
  Transmission Date: 20141212
  Serious: No
  Sender: FDA-Public Use
  Company Number: US-ASTRAZENECA-2013SE71470

PATIENT
  Age: 62 Year
  Sex: Female

DRUGS (3)
  1. NEXIUM [Suspect]
     Indication: BARRETT^S OESOPHAGUS
     Route: 048
     Dates: start: 201303
  2. NEXIUM [Suspect]
     Indication: BARRETT^S OESOPHAGUS
     Route: 048
     Dates: end: 201306
  3. AMLODIPINE [Concomitant]
     Indication: HYPERTENSION

REACTIONS (4)
  - Alopecia [Recovering/Resolving]
  - Back pain [Unknown]
  - Oropharyngeal pain [Unknown]
  - Blood alkaline phosphatase increased [Unknown]
